FAERS Safety Report 6880795-8 (Version None)
Quarter: 2010Q3

REPORT INFORMATION
  Report Type: 
  Country: None (occurrence: None)
  Receive Date: 20100728
  Receipt Date: 20100722
  Transmission Date: 20110219
  Serious: Yes (Death, Life-Threatening, Hospitalization)
  Sender: FDA-Public Use
  Company Number: IN-ELI_LILLY_AND_COMPANY-IN201007005911

PATIENT
  Age: 29 Year
  Sex: Male

DRUGS (1)
  1. XIGRIS [Suspect]
     Indication: SEPSIS
     Dosage: UNK, UNKNOWN
     Route: 065
     Dates: start: 20100702, end: 20100706

REACTIONS (5)
  - CARDIAC ARREST [None]
  - H1N1 INFLUENZA [None]
  - HYPOTENSION [None]
  - MULTI-ORGAN FAILURE [None]
  - SEPSIS [None]
